FAERS Safety Report 6491640-7 (Version None)
Quarter: 2009Q4

REPORT INFORMATION
  Report Type: 
  Country: None (occurrence: None)
  Receive Date: 20091207
  Receipt Date: 20091121
  Transmission Date: 20100525
  Serious: Yes (Disabling)
  Sender: FDA-Public Use
  Company Number: AUR-APL-2009-00310

PATIENT
  Age: 50 Year
  Sex: Female
  Weight: 81.5 kg

DRUGS (9)
  1. SIMVASTATIN [Suspect]
     Indication: DIABETES MELLITUS
     Dosage: 40 MG, DAILY, ORAL
     Route: 048
     Dates: start: 20080114, end: 20090106
  2. SIMVASTATIN [Suspect]
     Indication: HYPERLIPIDAEMIA
     Dosage: 40 MG, DAILY, ORAL
     Route: 048
     Dates: start: 20080114, end: 20090106
  3. ATORVASTATIN CALCIUM [Suspect]
     Indication: DIABETES MELLITUS
     Dosage: 40 MG, DAILY, ORAL
     Route: 048
     Dates: start: 20090107, end: 20090522
  4. ATORVASTATIN CALCIUM [Suspect]
     Indication: HYPERLIPIDAEMIA
     Dosage: 40 MG, DAILY, ORAL
     Route: 048
     Dates: start: 20090107, end: 20090522
  5. AMLODIPINE [Concomitant]
  6. EXENATIDE [Concomitant]
  7. GLICLAZIDE [Concomitant]
  8. METHYLDOPA [Concomitant]
  9. PIOGLITAZONE [Concomitant]

REACTIONS (1)
  - ANDROGENETIC ALOPECIA [None]
